FAERS Safety Report 22000804 (Version 1)
Quarter: 2023Q1

REPORT INFORMATION
  Report Type: Spontaneous
  Country: US (occurrence: US)
  Receive Date: 20230216
  Receipt Date: 20230216
  Transmission Date: 20230418
  Serious: No
  Sender: FDA-Public Use
  Company Number: US-BRISTOL-MYERS SQUIBB COMPANY-2023-022996

PATIENT
  Age: 66 Year
  Sex: Male
  Weight: 80.28 kg

DRUGS (3)
  1. REVLIMID [Suspect]
     Active Substance: LENALIDOMIDE
     Indication: Plasma cell myeloma
     Dosage: M-F FOR 21 DAYS
     Route: 048
  2. DEXAMETHASONE [Concomitant]
     Active Substance: DEXAMETHASONE
     Indication: Product used for unknown indication
     Dosage: WEEKLY FOR 3 WEEKS ON, 1 WEEK OFF
     Route: 048
  3. NINLARO [Concomitant]
     Active Substance: IXAZOMIB CITRATE
     Indication: Product used for unknown indication
     Dosage: WEEKLY FOR 3 WEEKS ON, 1 WEEK OFF
     Route: 048

REACTIONS (1)
  - Aphonia [Unknown]
